FAERS Safety Report 5955696-X (Version None)
Quarter: 2008Q4

REPORT INFORMATION
  Report Type: 
  Country: None (occurrence: None)
  Receive Date: 20081117
  Receipt Date: 20081106
  Transmission Date: 20090506
  Serious: Yes (Hospitalization)
  Sender: FDA-Public Use
  Company Number: FR-PFIZER INC-2006050593

PATIENT
  Sex: Female
  Weight: 61 kg

DRUGS (8)
  1. SU-011,248 [Suspect]
     Indication: RENAL CELL CARCINOMA
     Route: 048
     Dates: start: 20060322
  2. INSULIN [Concomitant]
     Route: 058
  3. NEXIUM [Concomitant]
     Route: 048
  4. NOCTAMID [Concomitant]
     Route: 048
  5. IXEL [Concomitant]
     Route: 048
  6. BROMAZEPAM [Concomitant]
     Route: 048
  7. CIRKAN [Concomitant]
     Route: 048
  8. TARDYFERON [Concomitant]
     Route: 048

REACTIONS (1)
  - OESOPHAGEAL ULCER [None]
